FAERS Safety Report 6932014-1 (Version None)
Quarter: 2010Q3

REPORT INFORMATION
  Report Type: 
  Country: None (occurrence: None)
  Receive Date: 20100816
  Receipt Date: 20100803
  Transmission Date: 20110219
  Serious: Yes (Hospitalization)
  Sender: FDA-Public Use
  Company Number: BVT-000328

PATIENT
  Sex: Female
  Weight: 50 kg

DRUGS (7)
  1. KINERET [Suspect]
     Indication: STILL'S DISEASE ADULT ONSET
     Dosage: (100 MG, QD SUBCUTANEOUS)
     Route: 058
     Dates: start: 20090401, end: 20100501
  2. KINERET [Suspect]
     Indication: STILL'S DISEASE ADULT ONSET
     Dosage: (100 MG, QD SUBCUTANEOUS)
     Route: 058
     Dates: start: 20090101
  3. ANTIBIOTICS [Concomitant]
  4. GLUCOCORTICOIDS [Concomitant]
  5. PREDNISONE [Concomitant]
  6. IMMUNE GLOBULIN NOS [Concomitant]
  7. IBUPROFEN [Concomitant]

REACTIONS (7)
  - ACUTE PHASE REACTION [None]
  - BORDETELLA INFECTION [None]
  - INJECTION SITE ERYTHEMA [None]
  - INJECTION SITE OEDEMA [None]
  - RASH [None]
  - SEPSIS [None]
  - UPPER RESPIRATORY TRACT INFECTION [None]
